FAERS Safety Report 10154726 (Version 3)
Quarter: 2014Q2

REPORT INFORMATION
  Report Type: Spontaneous
  Country: IT (occurrence: IT)
  Receive Date: 20140506
  Receipt Date: 20140627
  Transmission Date: 20141212
  Serious: Yes (Other)
  Sender: FDA-Public Use
  Company Number: IT-ROCHE-1396170

PATIENT
  Age: 70 Year
  Sex: Male

DRUGS (4)
  1. AVASTIN [Suspect]
     Indication: LUNG NEOPLASM MALIGNANT
     Dosage: LAST DOSE RECEIVED ON 04/FEB/2014
     Route: 041
     Dates: start: 20120110, end: 20140204
  2. LANSOPRAZOLE [Concomitant]
  3. COMBISARTAN [Concomitant]
  4. CARDURA [Concomitant]
     Route: 065
     Dates: start: 201311

REACTIONS (1)
  - Congestive cardiomyopathy [Unknown]
